FAERS Safety Report 8474423-8 (Version None)
Quarter: 2012Q2

REPORT INFORMATION
  Report Type: 
  Country: None (occurrence: None)
  Receive Date: 20120628
  Receipt Date: 20120620
  Transmission Date: 20120825
  Serious: Yes (Other)
  Sender: FDA-Public Use
  Company Number: PHHY2012CA026069

PATIENT
  Sex: Female

DRUGS (7)
  1. GLEEVEC [Suspect]
     Dosage: 300 MG, UNK
     Dates: start: 20080101
  2. PANTOPRAZOLE SODIUM [Concomitant]
  3. GLEEVEC [Suspect]
     Indication: CHRONIC MYELOID LEUKAEMIA
     Dosage: 400 MG, UNK
     Dates: start: 20080101
  4. COUMADIN [Concomitant]
  5. METOPROLOL TARTRATE [Concomitant]
  6. FUROSEMIDE [Concomitant]
  7. RAMIPRIL [Concomitant]

REACTIONS (11)
  - EJECTION FRACTION DECREASED [None]
  - FACE OEDEMA [None]
  - POSTPERICARDIOTOMY SYNDROME [None]
  - PERICARDITIS CONSTRICTIVE [None]
  - LEFT VENTRICULAR DYSFUNCTION [None]
  - DYSPNOEA [None]
  - NEUTROPENIA [None]
  - PNEUMOTHORAX [None]
  - AORTIC OCCLUSION [None]
  - PLEURAL EFFUSION [None]
  - AORTIC VALVE DISEASE [None]
